FAERS Safety Report 14631951 (Version 7)
Quarter: 2018Q2

REPORT INFORMATION
  Report Type: Spontaneous
  Country: FR (occurrence: FR)
  Receive Date: 20180313
  Receipt Date: 20180516
  Transmission Date: 20180711
  Serious: Yes (Hospitalization, Other)
  Sender: FDA-Public Use
  Company Number: FR-BAUSCH-BL-2018-006055

PATIENT
  Age: 30 Year
  Sex: Female

DRUGS (19)
  1. BRIDION [Suspect]
     Active Substance: SUGAMMADEX
     Indication: NEUROMUSCULAR BLOCKADE REVERSAL
     Route: 042
     Dates: start: 20171031, end: 20171102
  2. DAFALGAN CODEINE [Suspect]
     Active Substance: ACETAMINOPHEN\CODEINE PHOSPHATE
     Indication: NEUROMUSCULAR BLOCKADE REVERSAL
     Route: 048
     Dates: start: 20171101, end: 20171101
  3. DAFALGAN CODEINE [Suspect]
     Active Substance: ACETAMINOPHEN\CODEINE PHOSPHATE
     Indication: PROCEDURAL PAIN
     Route: 042
     Dates: start: 20171031, end: 20171101
  4. LEVOCETIRIZINE DIHYDROCHLORIDE. [Suspect]
     Active Substance: LEVOCETIRIZINE DIHYDROCHLORIDE
     Indication: RASH PRURITIC
     Route: 048
     Dates: start: 20171101, end: 20171101
  5. XYZALL [Suspect]
     Active Substance: LEVOCETIRIZINE DIHYDROCHLORIDE
     Indication: RASH PRURITIC
     Route: 048
     Dates: start: 20171101, end: 20171101
  6. DAFALGAN CODEINE [Suspect]
     Active Substance: ACETAMINOPHEN\CODEINE PHOSPHATE
     Indication: PAIN
     Route: 048
     Dates: start: 20171101, end: 20171101
  7. DAFALGAN CODEINE [Suspect]
     Active Substance: ACETAMINOPHEN\CODEINE PHOSPHATE
     Indication: AGITATION
     Route: 042
  8. DROPERIDOL. [Suspect]
     Active Substance: DROPERIDOL
     Indication: AGITATION
     Route: 042
     Dates: start: 20171031, end: 20171102
  9. LEVOCETIRIZINE DIHYDROCHLORIDE. [Suspect]
     Active Substance: LEVOCETIRIZINE DIHYDROCHLORIDE
     Route: 048
  10. LOVENOX [Suspect]
     Active Substance: ENOXAPARIN SODIUM
     Indication: THROMBOSIS PROPHYLAXIS
     Route: 042
     Dates: start: 20171031, end: 20171101
  11. POLARAMINE [Suspect]
     Active Substance: DEXCHLORPHENIRAMINE MALEATE
     Indication: RASH PRURITIC
     Route: 042
     Dates: start: 20171102, end: 20171102
  12. DAFALGAN CODEINE [Suspect]
     Active Substance: ACETAMINOPHEN\CODEINE PHOSPHATE
     Indication: ANTIBIOTIC PROPHYLAXIS
     Route: 048
     Dates: start: 20171101, end: 20171101
  13. DAFALGAN CODEINE [Suspect]
     Active Substance: ACETAMINOPHEN\CODEINE PHOSPHATE
     Indication: RASH PRURITIC
     Route: 042
     Dates: start: 20171031, end: 20171102
  14. LEXOMIL [Suspect]
     Active Substance: BROMAZEPAM
     Indication: ANXIETY
     Route: 048
     Dates: start: 20171101, end: 20171101
  15. METRONIDAZOLE. [Suspect]
     Active Substance: METRONIDAZOLE
     Indication: ANTIBIOTIC PROPHYLAXIS
     Dosage: PARENTERAL INJECTION SOLUTION
     Route: 042
     Dates: start: 20171101, end: 20171101
  16. GENTAMICIN. [Suspect]
     Active Substance: GENTAMICIN
     Indication: ANTIBIOTIC PROPHYLAXIS
     Route: 042
     Dates: start: 20171101, end: 20171101
  17. PARACETAMOL [Suspect]
     Active Substance: ACETAMINOPHEN
     Indication: PROCEDURAL PAIN
     Route: 042
     Dates: start: 20171031, end: 20171101
  18. MORPHINE SULFATE. [Suspect]
     Active Substance: MORPHINE SULFATE
     Indication: PROCEDURAL PAIN
     Route: 042
     Dates: start: 20171031, end: 20171101
  19. MORPHINE HYDROCHLORIDE [Suspect]
     Active Substance: MORPHINE HYDROCHLORIDE
     Indication: PROCEDURAL PAIN
     Route: 042
     Dates: start: 20171031, end: 20171101

REACTIONS (1)
  - Drug reaction with eosinophilia and systemic symptoms [Recovered/Resolved]

NARRATIVE: CASE EVENT DATE: 20171031
